FAERS Safety Report 5954630-6 (Version None)
Quarter: 2008Q4

REPORT INFORMATION
  Report Type: 
  Country: None (occurrence: None)
  Receive Date: 20081117
  Receipt Date: 20081112
  Transmission Date: 20090506
  Serious: Yes (Hospitalization, Other)
  Sender: FDA-Public Use
  Company Number: US-BRISTOL-MYERS SQUIBB COMPANY-14356570

PATIENT
  Age: 59 Year
  Sex: Male
  Weight: 57 kg

DRUGS (11)
  1. SPRYCEL [Suspect]
     Indication: RETROPERITONEAL CANCER
     Dosage: 70 MG BID 08SEP TO 18SEP08, INTER'D 29SEP08,RESTARTED 16OCT08 AT 50 MG PO BID; INTER'D AGAIN 27OCT08
     Route: 048
     Dates: start: 20080922
  2. OXYCODONE HCL [Concomitant]
     Indication: PAIN
     Dosage: 1 DF = 5-10MG Q4HR PRN
     Route: 048
  3. METOPROLOL SUCCINATE [Concomitant]
     Indication: HYPERTENSION
     Route: 048
  4. AMBIEN [Concomitant]
     Indication: INSOMNIA
     Route: 048
  5. ZOFRAN [Concomitant]
     Indication: NAUSEA
     Dosage: TID PRN
     Route: 048
  6. COMPAZINE [Concomitant]
     Indication: NAUSEA
     Dosage: Q6 PRN
     Route: 048
  7. COLACE [Concomitant]
     Dosage: QD PRN
     Route: 048
  8. TYLENOL (CAPLET) [Concomitant]
     Indication: PYREXIA
     Dosage: Q4HR PRN
     Route: 048
     Dates: start: 20080912
  9. TYLENOL (CAPLET) [Concomitant]
     Indication: PAIN
     Dosage: Q4HR PRN
     Route: 048
     Dates: start: 20080912
  10. MYLANTA [Concomitant]
     Indication: GASTROOESOPHAGEAL REFLUX DISEASE
     Route: 048
     Dates: start: 20080922
  11. IMODIUM [Concomitant]
     Indication: DIARRHOEA
     Dosage: Q2-4HR PRN
     Route: 048
     Dates: start: 20080929

REACTIONS (3)
  - BLOOD SODIUM DECREASED [None]
  - HAEMOGLOBIN DECREASED [None]
  - SMALL INTESTINAL OBSTRUCTION [None]
